FAERS Safety Report 4587003-1 (Version None)
Quarter: 2005Q1

REPORT INFORMATION
  Report Type: 
  Country: None (occurrence: None)
  Receive Date: 20050218
  Receipt Date: 20050207
  Transmission Date: 20050727
  Serious: Yes (Other)
  Sender: FDA-Public Use
  Company Number: PHBS2005BE02083

PATIENT
  Age: 49 Year
  Sex: Male

DRUGS (7)
  1. AREDIA [Suspect]
     Indication: HYPERCALCAEMIA
     Dosage: 90 MG, QMO
     Route: 042
     Dates: start: 20011226, end: 20021201
  2. VINBLASTINE SULFATE [Concomitant]
     Route: 065
     Dates: start: 20020206
  3. ROFERON [Concomitant]
     Route: 065
     Dates: start: 20020206
  4. TEGRETOL [Concomitant]
     Route: 065
     Dates: start: 20030501, end: 20031001
  5. CIPRAMIL [Concomitant]
     Route: 065
     Dates: start: 20050101
  6. LORMETAZEPAM [Concomitant]
     Route: 065
     Dates: start: 20050101
  7. ZOMETA [Suspect]
     Dosage: 4 MG, QMO
     Route: 042
     Dates: start: 20021224, end: 20041123

REACTIONS (12)
  - CHRONIC SINUSITIS [None]
  - FACIAL NEURALGIA [None]
  - FISTULA [None]
  - HEPATIC STEATOSIS [None]
  - METASTASES TO LUNG [None]
  - METASTASES TO PLEURA [None]
  - NEPHRECTOMY [None]
  - OSTEONECROSIS [None]
  - PLEURAL EFFUSION [None]
  - RENAL CELL CARCINOMA STAGE IV [None]
  - SURGERY [None]
  - TOOTH EXTRACTION [None]
